FAERS Safety Report 21068703 (Version 3)
Quarter: 2022Q4

REPORT INFORMATION
  Report Type: Other
  Country: US (occurrence: None)
  Receive Date: 20220712
  Receipt Date: 20221019
  Transmission Date: 20230113
  Serious: No
  Sender: FDA-Public Use
  Company Number: US-ROCHE-3137215

PATIENT
  Age: 67 Year
  Sex: Male
  Weight: 122.58 kg

DRUGS (2)
  1. OCREVUS [Suspect]
     Active Substance: OCRELIZUMAB
     Indication: Relapsing-remitting multiple sclerosis
     Dosage: IV DAY 1:300MG IV DAY 15:300MG IV, THEN 600 MG EVERY 6 MONTHS, PATIENT STATES THEY THINK THEY BEGAN
     Route: 042
     Dates: start: 20191118
  2. ALFUZOSIN [Concomitant]
     Active Substance: ALFUZOSIN

REACTIONS (1)
  - COVID-19 [Recovered/Resolved]

NARRATIVE: CASE EVENT DATE: 20220705
